FAERS Safety Report 18080225 (Version 1)
Quarter: 2020Q3

REPORT INFORMATION
  Report Type: Spontaneous
  Country: US (occurrence: US)
  Receive Date: 20200728
  Receipt Date: 20200728
  Transmission Date: 20201103
  Serious: Yes (Other)
  Sender: FDA-Public Use
  Company Number: US-MYLANLABS-2020M1067497

PATIENT
  Age: 48 Year
  Sex: Male

DRUGS (9)
  1. MYCOPHENOLATE MOFETIL. [Suspect]
     Active Substance: MYCOPHENOLATE MOFETIL
     Indication: THROMBOTIC THROMBOCYTOPENIC PURPURA
     Dosage: 1000 MILLIGRAM, BID
     Route: 065
  2. PLASMA [Concomitant]
     Active Substance: HUMAN PLASMA
     Dosage: 3 TIMES PER WEEK
  3. PLASMA [Concomitant]
     Active Substance: HUMAN PLASMA
     Indication: THROMBOTIC THROMBOCYTOPENIC PURPURA
     Dosage: UNK, QD
  4. PREDNISONE. [Suspect]
     Active Substance: PREDNISONE
     Indication: THROMBOTIC THROMBOCYTOPENIC PURPURA
     Dosage: 50 MILLIGRAM, QD
     Route: 065
  5. IMMUNOGLOBULINS NOS [Suspect]
     Active Substance: IMMUNE GLOBULIN NOS
     Indication: THROMBOTIC THROMBOCYTOPENIC PURPURA
     Route: 042
  6. BORTEZOMIB. [Suspect]
     Active Substance: BORTEZOMIB
     Indication: THROMBOTIC THROMBOCYTOPENIC PURPURA
     Route: 065
  7. CAPLACIZUMAB [Suspect]
     Active Substance: CAPLACIZUMAB
     Indication: THROMBOTIC THROMBOCYTOPENIC PURPURA
     Dosage: 11 MILLIGRAM, QD
     Route: 058
  8. RITUXIMAB. [Suspect]
     Active Substance: RITUXIMAB
     Indication: THROMBOTIC THROMBOCYTOPENIC PURPURA
     Route: 065
  9. CYCLOPHOSPHAMIDE. [Suspect]
     Active Substance: CYCLOPHOSPHAMIDE
     Indication: THROMBOTIC THROMBOCYTOPENIC PURPURA
     Dosage: 100 MILLIGRAM, QD(ENTIRE HOSPITAL STAY EXCEPT FOR A PERIOD OF MYELOSUPPRESSION
     Route: 065

REACTIONS (1)
  - Drug ineffective [Unknown]
